FAERS Safety Report 25757977 (Version 1)
Quarter: 2025Q3

REPORT INFORMATION
  Report Type: Report from Study
  Country: CN (occurrence: CN)
  Receive Date: 20250903
  Receipt Date: 20250903
  Transmission Date: 20251021
  Serious: Yes (Other)
  Sender: ABBVIE
  Company Number: CN-ABBVIE-6442310

PATIENT

DRUGS (2)
  1. BOTOX [Suspect]
     Active Substance: ONABOTULINUMTOXINA
     Indication: Skin wrinkling
     Route: 065
     Dates: start: 20240601, end: 20240601
  2. BOTOX [Suspect]
     Active Substance: ONABOTULINUMTOXINA
     Indication: Skin wrinkling
     Route: 065
     Dates: start: 20240601, end: 20240601

REACTIONS (11)
  - Botulism [Recovered/Resolved with Sequelae]
  - Hypotonia [Recovered/Resolved]
  - Dry eye [Recovered/Resolved]
  - Eye swelling [Recovered/Resolved]
  - Dyspnoea [Recovered/Resolved]
  - Heart rate increased [Recovered/Resolved]
  - Headache [Recovered/Resolved]
  - Nerve injury [Recovered/Resolved]
  - Diastasis recti abdominis [Unknown]
  - Periorbital swelling [Recovered/Resolved]
  - Asthenia [Recovered/Resolved]
